FAERS Safety Report 4600575-3 (Version None)
Quarter: 2005Q1

REPORT INFORMATION
  Report Type: 
  Country: None (occurrence: None)
  Receive Date: 20050304
  Receipt Date: 20050222
  Transmission Date: 20050727
  Serious: Yes (Other)
  Sender: FDA-Public Use
  Company Number: HQWYE00723FEB05

PATIENT
  Age: 29 Year
  Sex: Male

DRUGS (1)
  1. ADVIL [Suspect]
     Indication: HEADACHE
     Dosage: 1 CAPSULE 1X PER 1 DAY, ORAL
     Route: 048
     Dates: start: 20050214, end: 20050214

REACTIONS (3)
  - EYE DISORDER [None]
  - HYPERSENSITIVITY [None]
  - SWELLING FACE [None]
